FAERS Safety Report 11644015 (Version 1)
Quarter: 2015Q4

REPORT INFORMATION
  Report Type: Spontaneous
  Country: US (occurrence: None)
  Receive Date: 20151019
  Receipt Date: 20151019
  Transmission Date: 20160304
  Serious: No
  Sender: FDA-Public Use
  Company Number: None

PATIENT
  Age: 55 Year
  Sex: Female
  Weight: 59.88 kg

DRUGS (7)
  1. CURAMED [Concomitant]
  2. SYNTHROID [Concomitant]
     Active Substance: LEVOTHYROXINE SODIUM
  3. MULTIVITAMIN [Concomitant]
     Active Substance: VITAMINS
  4. VITAMIN C [Concomitant]
     Active Substance: ASCORBIC ACID
  5. LORAZEPAM. [Suspect]
     Active Substance: LORAZEPAM
     Indication: MENOPAUSAL SYMPTOMS
     Dosage: 1/2 TO 1 AT BEDTIME AS NEEDED
     Dates: start: 20151001, end: 20151007
  6. LORAZEPAM. [Suspect]
     Active Substance: LORAZEPAM
     Indication: INSOMNIA
     Dosage: 1/2 TO 1 AT BEDTIME AS NEEDED
     Dates: start: 20151001, end: 20151007
  7. LORAZEPAM. [Concomitant]
     Active Substance: LORAZEPAM

REACTIONS (5)
  - Nausea [None]
  - Product substitution issue [None]
  - Dizziness [None]
  - Pain in extremity [None]
  - Paraesthesia [None]

NARRATIVE: CASE EVENT DATE: 20151001
